APPROVED DRUG PRODUCT: CEFAZOLIN SODIUM
Active Ingredient: CEFAZOLIN SODIUM
Strength: EQ 20GM BASE/VIAL
Dosage Form/Route: INJECTABLE;INJECTION
Application: A063209 | Product #002
Applicant: FACTA FARMACEUTICI SPA
Approved: Apr 30, 1999 | RLD: No | RS: No | Type: DISCN